FAERS Safety Report 6186914-3 (Version None)
Quarter: 2009Q2

REPORT INFORMATION
  Report Type: 
  Country: None (occurrence: None)
  Receive Date: 20090508
  Receipt Date: 20090504
  Transmission Date: 20091009
  Serious: Yes (Other)
  Sender: FDA-Public Use
  Company Number: 09US001170

PATIENT
  Age: 61 Year
  Sex: Female
  Weight: 72.6 kg

DRUGS (1)
  1. NICOTINE [Suspect]
     Indication: SMOKING CESSATION THERAPY
     Dosage: 4 MG, SINGLE, ORAL
     Route: 048
     Dates: start: 20090427, end: 20090427

REACTIONS (4)
  - BLOOD PRESSURE INCREASED [None]
  - NAUSEA [None]
  - PANCREATITIS [None]
  - RETCHING [None]
